FAERS Safety Report 13645446 (Version 7)
Quarter: 2019Q3

REPORT INFORMATION
  Report Type: Report from Study
  Country: US (occurrence: US)
  Receive Date: 20170612
  Receipt Date: 20190730
  Transmission Date: 20191004
  Serious: Yes (Hospitalization, Other)
  Sender: FDA-Public Use
  Company Number: US-ARIAD PHARMACEUTICALS, INC-2017US008050

PATIENT
  Sex: Female

DRUGS (4)
  1. PONATINIB [Suspect]
     Active Substance: PONATINIB
     Indication: CHRONIC MYELOID LEUKAEMIA
     Dosage: 30 MILLIGRAM, QD
     Route: 048
     Dates: start: 201703
  2. PONATINIB [Suspect]
     Active Substance: PONATINIB
     Dosage: 30 MILLIGRAM, QD
     Route: 048
  3. PONATINIB [Suspect]
     Active Substance: PONATINIB
     Dosage: 30 MILLIGRAM, QD
     Route: 048
  4. PONATINIB [Suspect]
     Active Substance: PONATINIB
     Dosage: 45 MILLIGRAM, QD
     Route: 048
     Dates: start: 20171224

REACTIONS (21)
  - Generalised tonic-clonic seizure [Unknown]
  - Gastric disorder [Unknown]
  - Anxiety [Unknown]
  - Laboratory test abnormal [Unknown]
  - Eating disorder [Unknown]
  - Cardiac disorder [Unknown]
  - Arthralgia [Unknown]
  - Panic attack [Unknown]
  - Neuralgia [Unknown]
  - Pain [Unknown]
  - Rash [Unknown]
  - Hypersomnia [Not Recovered/Not Resolved]
  - Fatigue [Unknown]
  - Dry skin [Unknown]
  - Stomatitis [Unknown]
  - Peripheral swelling [Not Recovered/Not Resolved]
  - Insomnia [Unknown]
  - Seizure [Unknown]
  - Depressed mood [Unknown]
  - Chest discomfort [Unknown]
  - Neuropathy peripheral [Unknown]
